FAERS Safety Report 8262682-6 (Version None)
Quarter: 2012Q1

REPORT INFORMATION
  Report Type: 
  Country: None (occurrence: None)
  Receive Date: 20120327
  Receipt Date: 20080522
  Transmission Date: 20120608
  Serious: Yes (Hospitalization)
  Sender: FDA-Public Use
  Company Number: PHEH2008US01569

PATIENT
  Age: 46 Year
  Sex: Male

DRUGS (1)
  1. GLEEVEC [Suspect]
     Indication: CHRONIC MYELOID LEUKAEMIA
     Dosage: 400 MG, QD, ORAL
     Route: 048
     Dates: start: 20010601

REACTIONS (4)
  - CARDIAC FAILURE CONGESTIVE [None]
  - LEFT VENTRICULAR DYSFUNCTION [None]
  - ECHOCARDIOGRAM ABNORMAL [None]
  - CARDIAC PACEMAKER INSERTION [None]
